FAERS Safety Report 5202433-2 (Version None)
Quarter: 2006Q4

REPORT INFORMATION
  Report Type: 
  Country: None (occurrence: None)
  Receive Date: 20061012
  Receipt Date: 20051006
  Transmission Date: 20070319
  Serious: Yes (Hospitalization)
  Sender: FDA-Public Use
  Company Number: 05P-163-0313032-00

PATIENT
  Age: 22 Year
  Sex: Female
  Weight: 54.4316 kg

DRUGS (6)
  1. DEPAKOTE [Suspect]
     Indication: BIPOLAR DISORDER
     Dosage: SEE IMAGE
     Route: 048
     Dates: start: 20050701, end: 20051003
  2. DEPAKOTE [Suspect]
     Indication: BIPOLAR DISORDER
     Dosage: SEE IMAGE
     Route: 048
     Dates: start: 20051003
  3. PARACETAMOL [Concomitant]
  4. DIPHENHYDRAMINE HCL [Concomitant]
  5. RISPERIDONE [Concomitant]
  6. TOPIRAMATE [Concomitant]

REACTIONS (2)
  - ABNORMAL BEHAVIOUR [None]
  - EOSINOPHIL COUNT INCREASED [None]
